FAERS Safety Report 12579246 (Version 1)
Quarter: 2016Q3

REPORT INFORMATION
  Report Type: Spontaneous
  Country: DK (occurrence: DK)
  Receive Date: 20160721
  Receipt Date: 20160721
  Transmission Date: 20161109
  Serious: Yes (Life-Threatening, Other)
  Sender: FDA-Public Use
  Company Number: DK-PFIZER INC-2016351832

PATIENT
  Age: 67 Year
  Sex: Male

DRUGS (13)
  1. MAGNESIUM [Concomitant]
     Active Substance: MAGNESIUM
     Dosage: UNK
     Route: 065
  2. SPIRIX [Concomitant]
     Active Substance: SPIRONOLACTONE
     Dosage: UNK
     Route: 065
  3. ZYPREXA [Concomitant]
     Active Substance: OLANZAPINE
     Dosage: UNK(X 2 DAILY)
     Route: 065
  4. MORFIN [Concomitant]
     Active Substance: MORPHINE SULFATE
     Dosage: UNK
     Route: 065
  5. IMOZOP [Concomitant]
     Active Substance: ZOPICLONE
     Dosage: UNK
     Route: 065
  6. DEXDOR [Suspect]
     Active Substance: DEXMEDETOMIDINE HYDROCHLORIDE
     Indication: DELIRIUM
     Dosage: UNK
     Route: 042
     Dates: start: 20160609, end: 20160614
  7. CIRCADIN [Concomitant]
     Active Substance: MELATONIN
     Dosage: UNK
     Route: 065
  8. ACICLOVIR [Concomitant]
     Active Substance: ACYCLOVIR
     Route: 065
  9. POTASSIUM [Concomitant]
     Active Substance: POTASSIUM
     Dosage: UNK
     Route: 065
  10. TAZOCIN [Concomitant]
     Active Substance: PIPERACILLIN SODIUM\TAZOBACTAM SODIUM
     Dosage: UNK
     Route: 065
  11. METRONIDAZOLE. [Concomitant]
     Active Substance: METRONIDAZOLE
     Route: 065
  12. SERENASE [Suspect]
     Active Substance: HALOPERIDOL
     Indication: DELIRIUM
     Dosage: UNK
     Route: 042
     Dates: start: 20160604, end: 20160714
  13. VFEND [Concomitant]
     Active Substance: VORICONAZOLE
     Dosage: UNK
     Route: 065

REACTIONS (1)
  - Torsade de pointes [Recovered/Resolved]

NARRATIVE: CASE EVENT DATE: 20160614
